FAERS Safety Report 10448425 (Version 1)
Quarter: 2014Q3

REPORT INFORMATION
  Report Type: Spontaneous
  Country: BR (occurrence: BR)
  Receive Date: 20140911
  Receipt Date: 20140911
  Transmission Date: 20150326
  Serious: Yes (Death, Life-Threatening, Hospitalization)
  Sender: FDA-Public Use
  Company Number: BR-B.I. PHARMACEUTICALS,INC./RIDGEFIELD-2014-BI-42441BR

PATIENT
  Age: 93 Year
  Sex: Female
  Weight: 72 kg

DRUGS (8)
  1. PRESATICO [Concomitant]
     Indication: URINARY TRACT DISORDER
     Dosage: 40 MG
     Route: 048
     Dates: end: 201408
  2. LABIRIN [Concomitant]
     Active Substance: BETAHISTINE
     Indication: LABYRINTHITIS
     Dosage: 24 MG
     Route: 048
     Dates: start: 201402, end: 201408
  3. SINVASTATINA [Concomitant]
     Indication: BLOOD CHOLESTEROL INCREASED
     Route: 065
     Dates: end: 201408
  4. ASPIRINA [Concomitant]
     Active Substance: ASPIRIN
     Indication: CAROTID ARTERY OCCLUSION
     Route: 048
     Dates: end: 201408
  5. AUDAQUITONI [Concomitant]
     Indication: HYPERTENSION
     Route: 048
     Dates: start: 1974, end: 201408
  6. ISKENIL [Concomitant]
     Indication: CAROTID ARTERY DISEASE
     Route: 065
     Dates: end: 201408
  7. SPIRIVA [Suspect]
     Active Substance: TIOTROPIUM BROMIDE MONOHYDRATE
     Indication: DYSPNOEA
     Dosage: 1 PUF
     Route: 055
     Dates: start: 201407, end: 201408
  8. MONOPORDIL [Concomitant]
     Indication: CARDIAC DISORDER
     Dosage: 40 MG
     Route: 048
     Dates: end: 201408

REACTIONS (3)
  - Dyspnoea [Not Recovered/Not Resolved]
  - Cardiac arrest [Fatal]
  - Pneumonia [Not Recovered/Not Resolved]

NARRATIVE: CASE EVENT DATE: 201408
